FAERS Safety Report 5813494-1 (Version None)
Quarter: 2008Q3

REPORT INFORMATION
  Report Type: 
  Country: None (occurrence: None)
  Receive Date: 20080716
  Receipt Date: 20080716
  Transmission Date: 20090109
  Serious: Yes (Hospitalization)
  Sender: FDA-Public Use
  Company Number: None

PATIENT
  Age: 59 Year
  Sex: Male

DRUGS (1)
  1. RISPERIDONE [Suspect]
     Indication: SCHIZOAFFECTIVE DISORDER
     Dosage: 6 MG  AT BEDTIME  PO
     Route: 048
     Dates: start: 20071010, end: 20080111

REACTIONS (3)
  - ATAXIA [None]
  - FALL [None]
  - PARKINSONISM [None]
